FAERS Safety Report 13209334 (Version 1)
Quarter: 2017Q1

REPORT INFORMATION
  Report Type: Spontaneous
  Country: TR (occurrence: TR)
  Receive Date: 20170209
  Receipt Date: 20170209
  Transmission Date: 20170428
  Serious: Yes (Death)
  Sender: FDA-Public Use
  Company Number: TR-R-PHARM US LLC-2017RPM00002

PATIENT
  Age: 62 Year
  Sex: Female

DRUGS (1)
  1. IXEMPRA [Suspect]
     Active Substance: IXABEPILONE
     Indication: BREAST CANCER METASTATIC
     Dosage: 60 MG, UNK
     Route: 042

REACTIONS (1)
  - Respiratory failure [Fatal]
